FAERS Safety Report 6547549-3 (Version None)
Quarter: 2010Q1

REPORT INFORMATION
  Report Type: 
  Country: None (occurrence: None)
  Receive Date: 20100122
  Receipt Date: 20100106
  Transmission Date: 20100710
  Serious: Yes (Hospitalization, Other)
  Sender: FDA-Public Use
  Company Number: PHHY2009CA52395

PATIENT
  Sex: Male

DRUGS (9)
  1. ALISKIREN ALI+ [Suspect]
     Indication: HYPERTENSION
     Dosage: 150 MG, BID
     Route: 048
     Dates: start: 20090805
  2. ALISKIREN ALI+ [Suspect]
     Dosage: 300 MG DAILY
     Route: 048
     Dates: end: 20091028
  3. COZAAR [Concomitant]
     Dosage: 50 MG, UNK
  4. LIPITOR [Concomitant]
     Dosage: 20 MG, UNK
  5. LOPRESSOR [Concomitant]
     Dosage: 25 MG, BID
  6. ASPIRIN [Concomitant]
     Dosage: 80 MG, UNK
  7. CORDARONE [Concomitant]
     Dosage: UNK
     Dates: end: 20091210
  8. GLUCOPHAGE [Concomitant]
     Dosage: 1 G, BID
  9. PANTOPRAZOLE [Concomitant]
     Dosage: 40 MG, UNK

REACTIONS (1)
  - VASCULAR GRAFT [None]
